FAERS Safety Report 7391670-7 (Version None)
Quarter: 2011Q2

REPORT INFORMATION
  Report Type: 
  Country: None (occurrence: None)
  Receive Date: 20110404
  Receipt Date: 20110330
  Transmission Date: 20111010
  Serious: Yes (Disabling, Other)
  Sender: FDA-Public Use
  Company Number: FR-PFIZER INC-2011070410

PATIENT
  Age: 43 Year
  Sex: Male

DRUGS (2)
  1. TRANXENE [Concomitant]
     Dosage: 10 MG, UNK
  2. TAHOR [Suspect]
     Indication: HYPERCHOLESTEROLAEMIA
     Dosage: 10 MG, 1X/DAY
     Route: 048
     Dates: start: 20050101, end: 20080429

REACTIONS (2)
  - EPICONDYLITIS [None]
  - TENDON RUPTURE [None]
